FAERS Safety Report 17453664 (Version 1)
Quarter: 2020Q1

REPORT INFORMATION
  Report Type: Spontaneous
  Country: US (occurrence: US)
  Receive Date: 20200224
  Receipt Date: 20200224
  Transmission Date: 20200409
  Serious: No
  Sender: FDA-Public Use
  Company Number: US-VYERA PHARMACEUTICALS, LLC-2019VYE00069

PATIENT
  Age: 39 Year
  Sex: Female

DRUGS (10)
  1. LEUCOVORIN. [Concomitant]
     Active Substance: LEUCOVORIN
  2. ONDANSETRON [Concomitant]
     Active Substance: ONDANSETRON
  3. DARAPRIM [Suspect]
     Active Substance: PYRIMETHAMINE
     Indication: EYE INFECTION TOXOPLASMAL
     Dosage: 50 MG, 1X/DAY
     Route: 048
     Dates: start: 20191106
  4. DORZOLAMIDE/TOMOLOL [Concomitant]
  5. DICLOFEN POT [Concomitant]
  6. OMEPRAZOLE. [Concomitant]
     Active Substance: OMEPRAZOLE
  7. BRIMONIDINE [Concomitant]
     Active Substance: BRIMONIDINE TARTRATE
  8. AZITHROMYCIN ANHYDROUS. [Concomitant]
     Active Substance: AZITHROMYCIN ANHYDROUS
  9. PREDNISOLONE. [Concomitant]
     Active Substance: PREDNISOLONE
  10. SUCRALAFATE [Concomitant]

REACTIONS (6)
  - Decreased appetite [Unknown]
  - Oropharyngeal pain [Unknown]
  - Headache [Unknown]
  - Discomfort [Unknown]
  - Off label use [Unknown]
  - Stomatitis [Unknown]

NARRATIVE: CASE EVENT DATE: 20191106
